FAERS Safety Report 7252863-2 (Version None)
Quarter: 2011Q1

REPORT INFORMATION
  Report Type: 
  Country: None (occurrence: None)
  Receive Date: 20110129
  Receipt Date: 20100329
  Transmission Date: 20110831
  Serious: Yes (Hospitalization, Other)
  Sender: FDA-Public Use
  Company Number: US-ABBOTT-10P-163-0635108-00

PATIENT
  Sex: Female

DRUGS (4)
  1. HUMIRA [Suspect]
     Route: 058
     Dates: start: 20090101, end: 20100201
  2. HUMIRA [Suspect]
     Indication: OSTEOARTHRITIS
     Route: 058
     Dates: start: 20080801, end: 20090101
  3. HUMIRA [Suspect]
     Route: 058
     Dates: start: 20090101, end: 20100201
  4. HUMIRA [Suspect]
     Route: 058
     Dates: start: 20100326

REACTIONS (3)
  - HIP FRACTURE [None]
  - DRUG INEFFECTIVE [None]
  - FALL [None]
